FAERS Safety Report 4591249-6 (Version None)
Quarter: 2005Q1

REPORT INFORMATION
  Report Type: 
  Country: None (occurrence: None)
  Receive Date: 20050222
  Receipt Date: 20050208
  Transmission Date: 20050727
  Serious: Yes (Hospitalization, Other)
  Sender: FDA-Public Use
  Company Number: 2005027538

PATIENT

DRUGS (1)
  1. ZOLOFT [Suspect]
     Indication: ILL-DEFINED DISORDER

REACTIONS (4)
  - BLOOD PRESSURE SYSTOLIC DECREASED [None]
  - HAEMODYNAMIC INSTABILITY [None]
  - HEART RATE DECREASED [None]
  - SUICIDE ATTEMPT [None]
